FAERS Safety Report 21318664 (Version 4)
Quarter: 2023Q1

REPORT INFORMATION
  Report Type: Spontaneous
  Country: US (occurrence: US)
  Receive Date: 20220911
  Receipt Date: 20230301
  Transmission Date: 20230418
  Serious: No
  Sender: FDA-Public Use
  Company Number: US-SA-SAC20220829001565

PATIENT
  Age: 48 Year
  Sex: Female

DRUGS (11)
  1. DUPIXENT [Suspect]
     Active Substance: DUPILUMAB
     Indication: Eczema
     Dosage: 300 MG, QOW
     Route: 058
  2. DUPIXENT [Suspect]
     Active Substance: DUPILUMAB
     Indication: Neurodermatitis
     Dosage: 300 MG, PRN
     Route: 058
  3. ACZONE [CEFTRIAXONE SODIUM] [Concomitant]
     Dosage: UNK
  4. ADAPALENE [Concomitant]
     Active Substance: ADAPALENE
     Dosage: UNK
  5. CLINDAMYCIN PHOSPHATE [Concomitant]
     Active Substance: CLINDAMYCIN PHOSPHATE
  6. TRIAMCINOLONE ACETONIDE [Concomitant]
     Active Substance: TRIAMCINOLONE ACETONIDE
     Dosage: STRENGTH 0.025%
     Route: 061
  7. TRIAMCINOLONE ACETONIDE [Concomitant]
     Active Substance: TRIAMCINOLONE ACETONIDE
     Dosage: STRENGTH 0.1%
     Route: 061
  8. TRIAMCINOLONE ACETONIDE [Concomitant]
     Active Substance: TRIAMCINOLONE ACETONIDE
     Route: 061
  9. VITAMINS NOS [Concomitant]
     Active Substance: VITAMINS
     Dosage: 1 DF, QD
     Route: 048
  10. DOXEPIN [Concomitant]
     Active Substance: DOXEPIN
  11. ISOTRETINOIN [Concomitant]
     Active Substance: ISOTRETINOIN
     Route: 048

REACTIONS (8)
  - Vein disorder [Unknown]
  - Inflammation [Not Recovered/Not Resolved]
  - Neurodermatitis [Unknown]
  - Skin irritation [Unknown]
  - Pruritus [Unknown]
  - Alopecia [Unknown]
  - Therapeutic response decreased [Unknown]
  - Skin hyperpigmentation [Unknown]

NARRATIVE: CASE EVENT DATE: 20220714
